FAERS Safety Report 5323974-3 (Version None)
Quarter: 2007Q2

REPORT INFORMATION
  Report Type: 
  Country: None (occurrence: None)
  Receive Date: 20070514
  Receipt Date: 20070508
  Transmission Date: 20071010
  Serious: Yes (Life-Threatening, Hospitalization)
  Sender: FDA-Public Use
  Company Number: US-MERCK-0705USA00600

PATIENT
  Age: 57 Year
  Sex: Female

DRUGS (5)
  1. EMEND [Suspect]
     Route: 048
     Dates: start: 20070422, end: 20070422
  2. EMEND [Suspect]
     Route: 048
     Dates: start: 20070423, end: 20070424
  3. HERCEPTIN [Concomitant]
     Route: 065
  4. TAXOTERE [Concomitant]
     Route: 065
  5. CARBOPLATIN [Concomitant]
     Route: 065

REACTIONS (1)
  - NEPHRITIS HAEMORRHAGIC [None]
